FAERS Safety Report 5011005-4 (Version None)
Quarter: 2006Q2

REPORT INFORMATION
  Report Type: 
  Country: None (occurrence: None)
  Receive Date: 20060523
  Receipt Date: 20060510
  Transmission Date: 20061013
  Serious: Yes (Other)
  Sender: FDA-Public Use
  Company Number: HQWYE296511MAY06

PATIENT
  Age: 78 Year
  Sex: Female
  Weight: 56.75 kg

DRUGS (3)
  1. PREMARIN [Suspect]
     Indication: HORMONE REPLACEMENT THERAPY
     Dosage: 1.25 MG DAILY FOR 18 DAYS FOLLOWED BY 10 DAYS OF NORLUTATE, ORAL
     Route: 048
     Dates: start: 19420101, end: 20020101
  2. HYDROCHLOROTHIAZIDE [Concomitant]
  3. MORLUTATE (NORETHISTERONE ACETATE) [Concomitant]

REACTIONS (2)
  - CERVIX CARCINOMA STAGE I [None]
  - INSOMNIA [None]
